FAERS Safety Report 18223263 (Version 1)
Quarter: 2020Q3

REPORT INFORMATION
  Report Type: Spontaneous
  Country: JP (occurrence: JP)
  Receive Date: 20200902
  Receipt Date: 20200902
  Transmission Date: 20201103
  Serious: Yes (Death, Life-Threatening, Hospitalization, Other)
  Sender: FDA-Public Use
  Company Number: JP-PFIZER INC-2020336503

PATIENT
  Age: 76 Year
  Sex: Female
  Weight: 47 kg

DRUGS (10)
  1. RHEUMATREX [Suspect]
     Active Substance: METHOTREXATE SODIUM
     Indication: RHEUMATOID ARTHRITIS
     Dosage: 18 MG, DAILY (3 CAPSULES, THREE TIMES)
     Route: 048
     Dates: end: 20200721
  2. SOLANAX [Concomitant]
     Active Substance: ALPRAZOLAM
     Dosage: UNK
  3. EDIROL [Concomitant]
     Active Substance: ELDECALCITOL
     Dosage: UNK
  4. MUCOSTA [Concomitant]
     Active Substance: REBAMIPIDE
     Dosage: UNK
  5. VITANEURIN [Concomitant]
     Dosage: UNK
  6. AMLODIPINE [Concomitant]
     Active Substance: AMLODIPINE BESYLATE
     Dosage: UNK
  7. FOLIAMIN [Concomitant]
     Active Substance: FOLIC ACID
     Dosage: UNK
  8. HYPEN [Concomitant]
     Dosage: UNK
  9. BLOPRESS [Concomitant]
     Active Substance: CANDESARTAN CILEXETIL
     Dosage: UNK
  10. PREDONINE [Concomitant]
     Active Substance: PREDNISOLONE
     Dosage: UNK

REACTIONS (5)
  - Pancytopenia [Fatal]
  - Bacteraemia [Unknown]
  - Pseudomonas infection [Unknown]
  - Oral candidiasis [Unknown]
  - Staphylococcal infection [Unknown]

NARRATIVE: CASE EVENT DATE: 202007
